FAERS Safety Report 20740480 (Version 4)
Quarter: 2022Q3

REPORT INFORMATION
  Report Type: Spontaneous
  Country: US (occurrence: US)
  Receive Date: 20220422
  Receipt Date: 20220901
  Transmission Date: 20221027
  Serious: No
  Sender: FDA-Public Use
  Company Number: US-PFIZER INC-202200257858

PATIENT
  Age: 81 Year
  Sex: Female

DRUGS (2)
  1. IBRANCE [Suspect]
     Active Substance: PALBOCICLIB
     Dosage: 100 MG
  2. IBRANCE [Suspect]
     Active Substance: PALBOCICLIB
     Dosage: 75 MG
     Dates: end: 2022

REACTIONS (8)
  - Full blood count abnormal [Unknown]
  - Dry skin [Unknown]
  - Epistaxis [Unknown]
  - Alopecia [Unknown]
  - Stomatitis [Recovered/Resolved]
  - Neoplasm progression [Unknown]
  - White blood cell count decreased [Unknown]
  - Cough [Unknown]
